FAERS Safety Report 9674760 (Version 2)
Quarter: 2013Q4

REPORT INFORMATION
  Report Type: Spontaneous
  Country: US (occurrence: US)
  Receive Date: 20131107
  Receipt Date: 20131126
  Transmission Date: 20140711
  Serious: Yes (Life-Threatening, Hospitalization, Other)
  Sender: FDA-Public Use
  Company Number: US-JNJFOC-20131019164

PATIENT
  Age: 67 Year
  Sex: Male
  Weight: 110.68 kg

DRUGS (9)
  1. CLOBEX [Concomitant]
     Route: 065
  2. LEVOTHYROXINE [Concomitant]
     Route: 065
  3. KLOR CON [Concomitant]
     Route: 065
  4. GLIMEPIRIDE [Concomitant]
     Route: 065
  5. PREDNISONE [Concomitant]
     Route: 065
  6. REMICADE [Suspect]
     Indication: PSORIATIC ARTHROPATHY
     Dosage: AT 0, 2, 4 WEEKS
     Route: 042
     Dates: start: 20121002, end: 201303
  7. ONGLYZA [Concomitant]
     Route: 065
  8. TRAMADOL [Concomitant]
     Route: 048
  9. VITAMIN D [Concomitant]
     Route: 065

REACTIONS (4)
  - Lupus-like syndrome [Recovering/Resolving]
  - Nephrolithiasis [Unknown]
  - Platelet count decreased [Recovering/Resolving]
  - White blood cell count decreased [Recovering/Resolving]
